FAERS Safety Report 8255401-0 (Version None)
Quarter: 2012Q2

REPORT INFORMATION
  Report Type: 
  Country: None (occurrence: None)
  Receive Date: 20120403
  Receipt Date: 20120321
  Transmission Date: 20120825
  Serious: Yes (Other)
  Sender: FDA-Public Use
  Company Number: TW-ASTELLAS-2012US003227

PATIENT
  Age: 54 Year
  Sex: Female

DRUGS (5)
  1. GEMCITABINE HYDROCHLORIDE [Suspect]
     Indication: NON-SMALL CELL LUNG CANCER
     Dosage: 1200 MG/M2, DAYS 1 AND 8 Q3W
     Route: 065
  2. TARCEVA [Suspect]
     Indication: NON-SMALL CELL LUNG CANCER
     Dosage: 150 MG, UID/QD
     Route: 048
  3. BEVACIZUMAB [Suspect]
     Indication: NON-SMALL CELL LUNG CANCER
     Dosage: 15 MG/KG, Q3W
     Route: 065
  4. TARCEVA [Suspect]
     Dosage: UNK, UNKNOWN/D
     Route: 048
  5. CISPLATIN [Suspect]
     Indication: NON-SMALL CELL LUNG CANCER
     Dosage: 80 MG/M2, DAY 1 Q3W
     Route: 042

REACTIONS (5)
  - RASH PUSTULAR [None]
  - EPISTAXIS [None]
  - LEUKOPENIA [None]
  - THROMBOCYTOPENIA [None]
  - HAEMORRHAGIC DIATHESIS [None]
